FAERS Safety Report 5350890-3 (Version None)
Quarter: 2007Q2

REPORT INFORMATION
  Report Type: 
  Country: None (occurrence: None)
  Receive Date: 20070606
  Receipt Date: 20070606
  Transmission Date: 20071010
  Serious: Yes (Life-Threatening, Other)
  Sender: FDA-Public Use
  Company Number: None

PATIENT
  Age: 2 Day
  Sex: Male
  Weight: 3.402 kg

DRUGS (1)
  1. SUBUTEX [Suspect]
     Indication: THERAPY CESSATION
     Dosage: 8 MG DAILY PO
     Route: 048

REACTIONS (8)
  - DRUG EXPOSURE DURING PREGNANCY [None]
  - HAEMATOCHEZIA [None]
  - INFANTILE SPITTING UP [None]
  - INTUSSUSCEPTION [None]
  - IRRITABILITY [None]
  - PAIN [None]
  - TACHYPNOEA [None]
  - VOMITING PROJECTILE [None]
